FAERS Safety Report 8248216-0 (Version None)
Quarter: 2012Q1

REPORT INFORMATION
  Report Type: 
  Country: None (occurrence: None)
  Receive Date: 20120330
  Receipt Date: 20120317
  Transmission Date: 20120608
  Serious: Yes (Hospitalization)
  Sender: FDA-Public Use
  Company Number: DE-CELGENEUS-062-21880-12031991

PATIENT

DRUGS (2)
  1. DEXAMETHASONE [Concomitant]
     Route: 065
  2. REVLIMID [Suspect]
     Dosage: 25 MILLIGRAM
     Route: 048

REACTIONS (4)
  - HEPATIC ENZYME INCREASED [None]
  - DIABETES MELLITUS [None]
  - ARRHYTHMIA [None]
  - COAGULATION TEST ABNORMAL [None]
